FAERS Safety Report 8599260-5 (Version None)
Quarter: 2012Q3

REPORT INFORMATION
  Report Type: 
  Country: None (occurrence: None)
  Receive Date: 20120816
  Receipt Date: 20120319
  Transmission Date: 20120928
  Serious: No
  Sender: FDA-Public Use
  Company Number: US-AMGEN-USASP2012017500

PATIENT
  Age: 57 Year
  Sex: Female

DRUGS (6)
  1. NEXIUM [Concomitant]
     Dosage: UNK
  2. CRESTOR [Concomitant]
     Dosage: UNK
  3. HYDROCHLOROTHIAZIDE [Concomitant]
     Dosage: UNK
  4. NEUPOGEN [Suspect]
     Indication: PRODUCT USED FOR UNKNOWN INDICATION
     Dosage: 800 MUG, QD
     Dates: start: 20120302, end: 20120305
  5. ATENOLOL [Concomitant]
     Dosage: UNK
  6. PLAVIX [Concomitant]
     Dosage: UNK

REACTIONS (1)
  - HEADACHE [None]
